FAERS Safety Report 5633965-0 (Version None)
Quarter: 2008Q1

REPORT INFORMATION
  Report Type: 
  Country: None (occurrence: None)
  Receive Date: 20080131
  Receipt Date: 20071120
  Transmission Date: 20080703
  Serious: No
  Sender: FDA-Public Use
  Company Number: PHEH2007US15113

PATIENT
  Age: 57 Year
  Sex: Male

DRUGS (6)
  1. TEKTURNA [Suspect]
     Indication: HYPERTENSION
     Dosage: 300 MG, QD, ORAL
     Route: 048
  2. DIOVAN [Concomitant]
  3. AMLODIPINE [Concomitant]
  4. HYDRALAZINE HCL [Concomitant]
  5. METOLAZONE [Concomitant]
  6. INSULIN (INSULIN) [Concomitant]

REACTIONS (1)
  - BLOOD PRESSURE INCREASED [None]
